FAERS Safety Report 24590827 (Version 2)
Quarter: 2025Q1

REPORT INFORMATION
  Report Type: Spontaneous
  Country: BR (occurrence: BR)
  Receive Date: 20241107
  Receipt Date: 20250223
  Transmission Date: 20250409
  Serious: No
  Sender: BIOGEN
  Company Number: BR-BIOGEN-2023BI01207617

PATIENT
  Age: 15 Year
  Sex: Male
  Weight: 77 kg

DRUGS (2)
  1. TYSABRI [Suspect]
     Active Substance: NATALIZUMAB
     Indication: Multiple sclerosis
     Route: 050
     Dates: start: 20221201, end: 20230515
  2. TYSABRI [Suspect]
     Active Substance: NATALIZUMAB
     Route: 050
     Dates: start: 2023

REACTIONS (2)
  - Off label use [Recovered/Resolved]
  - Vomiting [Not Recovered/Not Resolved]

NARRATIVE: CASE EVENT DATE: 20221201
